FAERS Safety Report 20621947 (Version 1)
Quarter: 2022Q1

REPORT INFORMATION
  Report Type: Spontaneous
  Country: US (occurrence: None)
  Receive Date: 20220321
  Receipt Date: 20220321
  Transmission Date: 20220424
  Serious: Yes (Hospitalization, Disabling, Other)
  Sender: FDA-Public Use
  Company Number: None

PATIENT
  Age: 66 Year
  Sex: Female
  Weight: 83.25 kg

DRUGS (31)
  1. IBRANCE [Suspect]
     Active Substance: PALBOCICLIB
     Indication: Breast cancer stage IV
     Dosage: OTHER FREQUENCY : DAILY, 3 WKS ON 1;?
     Route: 048
  2. ZOLOFT [Concomitant]
     Active Substance: SERTRALINE HYDROCHLORIDE
  3. WELLBUTRIN [Concomitant]
     Active Substance: BUPROPION HYDROCHLORIDE
  4. ABILIFY [Concomitant]
     Active Substance: ARIPIPRAZOLE
  5. LAMICTAL [Concomitant]
     Active Substance: LAMOTRIGINE
  6. PROTONIX [Concomitant]
     Active Substance: PANTOPRAZOLE SODIUM
  7. SYNTHROID [Concomitant]
     Active Substance: LEVOTHYROXINE SODIUM
  8. Mdifinil [Concomitant]
  9. OLMESARTAN [Concomitant]
     Active Substance: OLMESARTAN
  10. METOPROLOL TARTRATE [Concomitant]
     Active Substance: METOPROLOL TARTRATE
  11. SIMVASTATIN [Concomitant]
     Active Substance: SIMVASTATIN
  12. Fulcestrant hormone [Concomitant]
  13. VITAMIN A [Concomitant]
     Active Substance: VITAMIN A
  14. VITAMIN B COMPLEX [Concomitant]
     Active Substance: CYANOCOBALAMIN\DEXPANTHENOL\NIACINAMIDE\PYRIDOXINE HYDROCHLORIDE\RIBOFLAVIN 5^-PHOSPHATE SODIUM\THIA
  15. VITAMIN C [Concomitant]
     Active Substance: ASCORBIC ACID
  16. VITAMIN D [Concomitant]
     Active Substance: VITAMIN D NOS
  17. VITAMIN E [Concomitant]
     Active Substance: .ALPHA.-TOCOPHEROL
  18. VITAMIN K [Concomitant]
     Active Substance: PHYTONADIONE
  19. ZINC [Concomitant]
     Active Substance: ZINC
  20. MAGNESIUM [Concomitant]
     Active Substance: MAGNESIUM
  21. CHROMIUM [Concomitant]
     Active Substance: CHROMIC CHLORIDE\CHROMIUM
  22. POTASSIUM [Concomitant]
     Active Substance: POTASSIUM
  23. COLLAGEN [Concomitant]
     Active Substance: COLLAGEN
  24. Schiffs move free [Concomitant]
  25. FOLATE SODIUM [Concomitant]
     Active Substance: FOLATE SODIUM
  26. BIOTIN [Concomitant]
     Active Substance: BIOTIN
  27. IRON [Concomitant]
     Active Substance: IRON
  28. MANGANESE [Concomitant]
     Active Substance: MANGANESE CHLORIDE
  29. SELENIUM [Concomitant]
     Active Substance: SELENIUM
  30. LYSINE [Concomitant]
     Active Substance: LYSINE
  31. DIETARY SUPPLEMENT\HERBALS\MILK THISTLE [Concomitant]
     Active Substance: DIETARY SUPPLEMENT\HERBALS\MILK THISTLE

REACTIONS (4)
  - Pneumonitis [None]
  - Pneumonitis [None]
  - COVID-19 [None]
  - Lung disorder [None]

NARRATIVE: CASE EVENT DATE: 20220121
